FAERS Safety Report 6310936-2 (Version None)
Quarter: 2009Q3

REPORT INFORMATION
  Report Type: 
  Country: None (occurrence: None)
  Receive Date: 20090816
  Receipt Date: 20090807
  Transmission Date: 20100115
  Serious: Yes (Life-Threatening, Hospitalization)
  Sender: FDA-Public Use
  Company Number: HU-ALLERGAN-0911042US

PATIENT
  Age: 3 Month
  Sex: Male

DRUGS (1)
  1. COMBIGAN [Suspect]
     Indication: INTRAOCULAR PRESSURE INCREASED
     Dosage: 1 GTT, SINGLE
     Route: 047
     Dates: start: 20090724, end: 20090724

REACTIONS (5)
  - BLOOD PRESSURE DECREASED [None]
  - DISORIENTATION [None]
  - DYSPNOEA [None]
  - HYPOTONIA [None]
  - TACHYCARDIA [None]
